FAERS Safety Report 24008238 (Version 2)
Quarter: 2025Q3

REPORT INFORMATION
  Report Type: Report from Study
  Country: ZA (occurrence: ZA)
  Receive Date: 20240625
  Receipt Date: 20250805
  Transmission Date: 20251020
  Serious: Yes (Death)
  Sender: ABBVIE
  Company Number: ZA-ABBOTT-2024A-1383184

PATIENT
  Age: 72 Year
  Sex: Male

DRUGS (11)
  1. FENOFIBRATE [Suspect]
     Active Substance: FENOFIBRATE
     Indication: Blood cholesterol abnormal
     Dosage: 200 MG TAKE ONE CAPSULE ONCE PER DAY
     Route: 048
  2. ECOTRIN [Concomitant]
     Active Substance: ASPIRIN
     Indication: Blood disorder prophylaxis
     Dosage: 81 MG TAKE ONE TABLET ONCE PER DAY
     Route: 048
  3. NEUROBION [Concomitant]
     Active Substance: CYANOCOBALAMIN\PYRIDOXINE\THIAMINE
     Indication: Product used for unknown indication
     Dosage: TAKE ONE TABLET ONCE PER DAY
     Route: 048
  4. GLIMEPIRIDE [Concomitant]
     Active Substance: GLIMEPIRIDE
     Indication: Diabetes mellitus
     Dosage: 1 MG TAKE ONE TABLET ONCE PER DAY
     Route: 048
  5. METFORMIN HYDROCHLORIDE [Concomitant]
     Active Substance: METFORMIN HYDROCHLORIDE
     Indication: Diabetes mellitus
     Dosage: 1000 MG TAKE ONE TABLET TWICE A DAY
     Route: 048
  6. METFORMIN HYDROCHLORIDE [Concomitant]
     Active Substance: METFORMIN HYDROCHLORIDE
     Indication: Diabetes mellitus
     Dosage: 500 MG TAKE TWO TABLETS TWICE A DAY
     Route: 048
  7. Stellar activ folate [Concomitant]
     Indication: Coronary artery disease
     Dosage: 500 MCG TAKE ONE TABLET ONCE PER DAY
     Route: 048
  8. RIVAROXABAN [Concomitant]
     Active Substance: RIVAROXABAN
     Indication: Blood disorder prophylaxis
     Dosage: 20 MG TAKE ONE TABLET ONCE PER DAY
     Route: 048
  9. MEMANTINE HYDROCHLORIDE [Concomitant]
     Active Substance: MEMANTINE HYDROCHLORIDE
     Indication: Dementia Alzheimer^s type
     Dosage: 10 MG TAKE ONE TABLET TWICE A DAY
     Route: 048
  10. Lipogen [Concomitant]
     Indication: Blood cholesterol abnormal
     Dosage: 40 MG TAKE ONE TABLET AT NIGHT
     Route: 048
  11. ESCITALOPRAM [Concomitant]
     Active Substance: ESCITALOPRAM OXALATE
     Indication: Depression
     Dosage: 10 MG TAKE ONE TABLET ONCE PER DAY
     Route: 048

REACTIONS (1)
  - Death [Fatal]
